FAERS Safety Report 21432446 (Version 1)
Quarter: 2022Q4

REPORT INFORMATION
  Report Type: Spontaneous
  Country: CN (occurrence: CN)
  Receive Date: 20221009
  Receipt Date: 20221009
  Transmission Date: 20230112
  Serious: Yes (Other)
  Sender: FDA-Public Use
  Company Number: None

PATIENT
  Age: 25 Year
  Sex: Male
  Weight: 57.5 kg

DRUGS (7)
  1. CYCLOPHOSPHAMIDE [Suspect]
     Active Substance: CYCLOPHOSPHAMIDE
     Indication: Non-Hodgkin^s lymphoma
     Dosage: 490 MG TWICE DAILY, INTRA-PUMP, DILUTED WITH 0.9% 100 ML SODIUM CHLORIDE ELECTRONIC PUMP Q12H
     Route: 042
     Dates: start: 20220824, end: 20220826
  2. SODIUM CHLORIDE [Suspect]
     Active Substance: SODIUM CHLORIDE
     Indication: Medication dilution
     Dosage: 100 ML ELECTRONIC PUMP Q12H, DILUTED WITH 490 MG CYCLOPHOSPHAMIDE TWICE A  DAILY INTRA-PUMP
     Route: 050
     Dates: start: 20220824, end: 20220826
  3. SODIUM CHLORIDE [Suspect]
     Active Substance: SODIUM CHLORIDE
     Dosage: 30 ML INTRAVENOUS BOLUS ONCE, DILUTED WITH 4 MG VINDESINE SULFATE
     Route: 065
     Dates: start: 20220827, end: 20220827
  4. DEXTROSE MONOHYDRATE [Suspect]
     Active Substance: DEXTROSE MONOHYDRATE
     Indication: Medication dilution
     Dosage: 150 ML ELECTRONIC PUMP ONCE, DILUTED WITH 55 MG DOXORUBICIN HYDROCHLORIDE LIPOSOME
     Route: 050
     Dates: start: 20220827, end: 20220827
  5. VINDESINE SULFATE [Suspect]
     Active Substance: VINDESINE SULFATE
     Indication: Non-Hodgkin^s lymphoma
     Dosage: 4 MG QD, DILUTED WITH 0.9% 30 ML SODIUM CHLORIDE ONCE
     Route: 040
     Dates: start: 20220827, end: 20220827
  6. DOXORUBICIN [Suspect]
     Active Substance: DOXORUBICIN
     Indication: Non-Hodgkin^s lymphoma
     Dosage: 55 MG QD, 5% 150 MLGLUCOSE ELECTRONIC PUMP ONCE
     Route: 042
     Dates: start: 20220827, end: 20220827
  7. DEXAMETHASONE [Suspect]
     Active Substance: DEXAMETHASONE
     Indication: Product used for unknown indication
     Dosage: 40 MG QD D1-4
     Route: 041

REACTIONS (15)
  - Mouth ulceration [Recovering/Resolving]
  - Condition aggravated [Recovering/Resolving]
  - Leukoplakia [Unknown]
  - Myelosuppression [Recovering/Resolving]
  - Oropharyngeal pain [Recovering/Resolving]
  - Pain [Unknown]
  - Odynophagia [Unknown]
  - Pharyngeal ulceration [Unknown]
  - Paraesthesia [Unknown]
  - Oral mucosal blistering [Unknown]
  - Feeling hot [Unknown]
  - Dry throat [Recovering/Resolving]
  - Throat irritation [Recovering/Resolving]
  - Pharyngeal erythema [Recovering/Resolving]
  - Cough [Unknown]

NARRATIVE: CASE EVENT DATE: 20220902
